FAERS Safety Report 6734694-2 (Version None)
Quarter: 2010Q2

REPORT INFORMATION
  Report Type: 
  Country: None (occurrence: None)
  Receive Date: 20100519
  Receipt Date: 20100519
  Transmission Date: 20101027
  Serious: Yes (Hospitalization)
  Sender: FDA-Public Use
  Company Number: None

PATIENT
  Sex: Female
  Weight: 137.7 kg

DRUGS (6)
  1. TRISENOX [Suspect]
     Indication: ENDOMETRIAL CANCER
     Dosage: 0.25MG/KG/DAY IV
     Route: 042
     Dates: start: 20100510, end: 20100512
  2. LASIX [Concomitant]
  3. HYDROCHLOROTHIAZIDE [Concomitant]
  4. DIOVAN [Concomitant]
  5. LOVENOX [Concomitant]
  6. MAGNESIUM SULFATE [Concomitant]

REACTIONS (4)
  - DYSPNOEA EXERTIONAL [None]
  - METAL POISONING [None]
  - TREATMENT NONCOMPLIANCE [None]
  - WEIGHT INCREASED [None]
